FAERS Safety Report 4381130-X (Version None)
Quarter: 2004Q2

REPORT INFORMATION
  Report Type: 
  Country: None (occurrence: None)
  Receive Date: 20040601
  Receipt Date: 20040430
  Transmission Date: 20050107
  Serious: No
  Sender: FDA-Public Use
  Company Number: FABR-10371

PATIENT
  Age: 38 Year
  Sex: Male
  Weight: 89.4 kg

DRUGS (1)
  1. FABRAZYME [Suspect]
     Indication: FABRY'S DISEASE
     Dosage: 105 MG Q2WKS  IV
     Route: 042
     Dates: start: 20031107

REACTIONS (5)
  - FEELING COLD [None]
  - FEELING HOT [None]
  - NAUSEA [None]
  - PARAESTHESIA [None]
  - VOMITING [None]
